FAERS Safety Report 16307610 (Version 1)
Quarter: 2019Q2

REPORT INFORMATION
  Report Type: Spontaneous
  Country: PT (occurrence: PT)
  Receive Date: 20190514
  Receipt Date: 20190514
  Transmission Date: 20190711
  Serious: Yes (Hospitalization, Other)
  Sender: FDA-Public Use
  Company Number: PT-HIKMA PHARMACEUTICALS USA INC.-PT-H14001-19-03024

PATIENT
  Age: 58 Year
  Sex: Male

DRUGS (4)
  1. OXALIPLATIN. [Suspect]
     Active Substance: OXALIPLATIN
     Indication: ADENOCARCINOMA OF COLON
     Route: 065
  2. AMOXICILLIN AND CLAVULANATE POTASSIUM [Suspect]
     Active Substance: AMOXICILLIN\CLAVULANATE POTASSIUM
     Indication: ABDOMINAL WALL HAEMATOMA
     Route: 065
  3. LEUCOVORIN. [Concomitant]
     Active Substance: LEUCOVORIN
     Indication: ADENOCARCINOMA OF COLON
     Route: 065
  4. FLUOROURACIL. [Concomitant]
     Active Substance: FLUOROURACIL
     Indication: ADENOCARCINOMA OF COLON
     Route: 065

REACTIONS (4)
  - Cholestasis [Recovered/Resolved]
  - Splenomegaly [Recovered/Resolved]
  - Non-cirrhotic portal hypertension [Recovered/Resolved]
  - Drug-induced liver injury [Recovered/Resolved]
